FAERS Safety Report 5127533-7 (Version None)
Quarter: 2006Q4

REPORT INFORMATION
  Report Type: 
  Country: None (occurrence: None)
  Receive Date: 20061016
  Receipt Date: 20061005
  Transmission Date: 20070319
  Serious: Yes (Life-Threatening, Other)
  Sender: FDA-Public Use
  Company Number: GB-BAYER-200611231BNE

PATIENT
  Age: 71 Year
  Sex: Female

DRUGS (6)
  1. ASPIRIN [Suspect]
  2. LANSOPRAZOLE [Suspect]
     Indication: MYOCARDIAL INFARCTION
     Route: 048
     Dates: start: 20060401, end: 20060901
  3. AMLODIPINE [Concomitant]
     Route: 048
  4. BISOPROLOL FUMARATE [Concomitant]
     Route: 048
  5. PERINDOPRIL ERBUMINE [Concomitant]
     Route: 048
     Dates: start: 20040101
  6. SIMVASTATIN [Concomitant]
     Route: 048

REACTIONS (8)
  - ABDOMINAL PAIN [None]
  - ARTHRALGIA [None]
  - CHAPPED LIPS [None]
  - DIPLOPIA [None]
  - MOUTH ULCERATION [None]
  - MYALGIA [None]
  - SKIN EXFOLIATION [None]
  - STEVENS-JOHNSON SYNDROME [None]
